FAERS Safety Report 25038203 (Version 2)
Quarter: 2025Q1

REPORT INFORMATION
  Report Type: Spontaneous
  Country: CN (occurrence: CN)
  Receive Date: 20250304
  Receipt Date: 20250310
  Transmission Date: 20250408
  Serious: Yes (Life-Threatening, Other)
  Sender: PFIZER
  Company Number: CN-PFIZER INC-PV202500023989

PATIENT
  Age: 4 Year
  Sex: Male
  Weight: 18 kg

DRUGS (8)
  1. CYTARABINE [Suspect]
     Active Substance: CYTARABINE
     Indication: Neoplasm
     Dosage: 0.038G Q12H INCREASED TO 0.075G Q12H
     Route: 041
     Dates: start: 20241120
  2. CYTARABINE [Suspect]
     Active Substance: CYTARABINE
     Indication: Chemotherapy
     Dosage: 0.038G Q12H INCREASED TO 0.075G Q12H
     Route: 041
     Dates: end: 20241204
  3. CYTARABINE [Suspect]
     Active Substance: CYTARABINE
     Dosage: 0.076 G, 2X/DAY
     Route: 041
     Dates: start: 20250108, end: 20250114
  4. CYTARABINE [Suspect]
     Active Substance: CYTARABINE
     Dosage: 2.28 G, 2X/DAY
     Route: 041
     Dates: start: 20250210, end: 20250211
  5. AVAPRITINIB [Concomitant]
     Active Substance: AVAPRITINIB
     Route: 048
     Dates: start: 20241203
  6. AVAPRITINIB [Concomitant]
     Active Substance: AVAPRITINIB
     Dosage: 33 MG, 1X/DAY
     Route: 048
     Dates: start: 20250209, end: 20250211
  7. OMACETAXINE MEPESUCCINATE [Concomitant]
     Active Substance: OMACETAXINE MEPESUCCINATE
     Route: 041
     Dates: start: 20241125, end: 20241204
  8. OMACETAXINE MEPESUCCINATE [Concomitant]
     Active Substance: OMACETAXINE MEPESUCCINATE
     Dosage: 2.28 MG, 1X/DAY
     Route: 041
     Dates: start: 20250210, end: 20250211

REACTIONS (5)
  - Hyperpyrexia [Recovered/Resolved]
  - Hypotension [Recovered/Resolved]
  - Capillary leak syndrome [Recovered/Resolved]
  - Blood albumin decreased [Unknown]
  - Pyrexia [Unknown]

NARRATIVE: CASE EVENT DATE: 20241130
